FAERS Safety Report 10510345 (Version 1)
Quarter: 2014Q4

REPORT INFORMATION
  Report Type: Spontaneous
  Country: US (occurrence: None)
  Receive Date: 20141009
  Receipt Date: 20141009
  Transmission Date: 20150528
  Serious: Yes (Other)
  Sender: FDA-Public Use
  Company Number: None

PATIENT
  Age: 66 Year
  Sex: Male
  Weight: 101.61 kg

DRUGS (7)
  1. TROSPIUM CHLORIDE. [Suspect]
     Active Substance: TROSPIUM CHLORIDE
     Indication: POLLAKIURIA
     Dosage: 1 PILL TWICE DAILY TAKEN BY MOUTH
     Route: 048
     Dates: start: 20141006, end: 20141007
  2. VITAMIN D [Concomitant]
     Active Substance: CHOLECALCIFEROL
  3. VITAMIN C [Concomitant]
     Active Substance: ASCORBIC ACID
  4. TAMSULOSIN [Suspect]
     Active Substance: TAMSULOSIN
  5. PROEFA [Concomitant]
  6. GARLIC. [Concomitant]
     Active Substance: GARLIC
  7. MAGNESIUM [Concomitant]
     Active Substance: MAGNESIUM

REACTIONS (5)
  - Constipation [None]
  - Lip dry [None]
  - Dysuria [None]
  - Dry mouth [None]
  - Micturition urgency [None]

NARRATIVE: CASE EVENT DATE: 20141007
